FAERS Safety Report 4625463-8 (Version None)
Quarter: 2005Q2

REPORT INFORMATION
  Report Type: 
  Country: None (occurrence: None)
  Receive Date: 20050401
  Receipt Date: 20050315
  Transmission Date: 20051028
  Serious: Yes (Death)
  Sender: FDA-Public Use
  Company Number: MW-BOEHRINGER INGELHEIM PHARMACEUTICALS, INC.-2005-BP-04308BP

PATIENT
  Age: 6 Month
  Sex: Male

DRUGS (7)
  1. VIRAMUNE [Suspect]
     Indication: VERTICAL INFECTION TRANSMISSION
     Route: 048
     Dates: start: 20021030, end: 20021030
  2. COTRIM [Concomitant]
  3. FERROUS SULFATE TAB [Concomitant]
  4. CIPROFLOXACIN [Concomitant]
  5. CALPOL [Concomitant]
  6. HYDROCORTISONE [Concomitant]
     Route: 042
  7. LASIX [Concomitant]

REACTIONS (4)
  - DRUG EXPOSURE DURING PREGNANCY [None]
  - NEONATAL RESPIRATORY DISTRESS SYNDROME [None]
  - PNEUMONIA [None]
  - PREMATURE BABY [None]
